FAERS Safety Report 5286224-2 (Version None)
Quarter: 2007Q2

REPORT INFORMATION
  Report Type: 
  Country: None (occurrence: None)
  Receive Date: 20070404
  Receipt Date: 20070323
  Transmission Date: 20071010
  Serious: Yes (Hospitalization)
  Sender: FDA-Public Use
  Company Number: PHBS2007SE05227

PATIENT
  Age: 25 Year
  Sex: Female

DRUGS (3)
  1. PARLODEL [Suspect]
     Indication: SUPPRESSED LACTATION
     Dosage: 5 MG, UNK
     Route: 048
     Dates: start: 20070225, end: 20070305
  2. HUMALOG [Concomitant]
  3. LANTUS [Concomitant]

REACTIONS (3)
  - ASTHENIA [None]
  - PLATELET COUNT INCREASED [None]
  - TRANSIENT ISCHAEMIC ATTACK [None]
